FAERS Safety Report 9843703 (Version 1)
Quarter: 2013Q4

REPORT INFORMATION
  Report Type: Spontaneous
  Country: US (occurrence: None)
  Receive Date: 20131223
  Receipt Date: 20131223
  Transmission Date: 20140711
  Serious: Yes (Other)
  Sender: FDA-Public Use
  Company Number: 218720LEO

PATIENT
  Age: 62 Year
  Sex: Female

DRUGS (1)
  1. PICATO (0.015 %, GEL) [Suspect]
     Indication: PRODUCT USED FOR UNKNOWN INDICATION
     Route: 061
     Dates: start: 20120822, end: 20120824

REACTIONS (5)
  - Application site dryness [None]
  - Application site erythema [None]
  - Application site vesicles [None]
  - Application site exfoliation [None]
  - Periorbital oedema [None]
